FAERS Safety Report 4386536-0 (Version None)
Quarter: 2004Q2

REPORT INFORMATION
  Report Type: 
  Country: None (occurrence: None)
  Receive Date: 20040629
  Receipt Date: 20040514
  Transmission Date: 20050107
  Serious: Yes (Disabling)
  Sender: FDA-Public Use
  Company Number: 200411584EU

PATIENT
  Age: 30 Year
  Sex: Male

DRUGS (3)
  1. KETEK [Suspect]
     Indication: TONSILLITIS
     Route: 048
     Dates: start: 20040507, end: 20040508
  2. PARACETAMOL/ CAFFEINE [Concomitant]
     Route: 048
     Dates: start: 20040507
  3. NSAID'S [Concomitant]

REACTIONS (3)
  - BLINDNESS TRANSIENT [None]
  - IMPAIRED WORK ABILITY [None]
  - VISION BLURRED [None]
